FAERS Safety Report 18122018 (Version 2)
Quarter: 2021Q1

REPORT INFORMATION
  Report Type: Spontaneous
  Country: US (occurrence: US)
  Receive Date: 20200806
  Receipt Date: 20210222
  Transmission Date: 20210419
  Serious: No
  Sender: FDA-Public Use
  Company Number: US-ASTRAZENECA-2020SE91745

PATIENT
  Age: 726 Month
  Sex: Female
  Weight: 78 kg

DRUGS (1)
  1. BYDUREON [Suspect]
     Active Substance: EXENATIDE
     Indication: DIABETES MELLITUS
     Route: 058
     Dates: start: 202006

REACTIONS (3)
  - Needle issue [Unknown]
  - Injection site pain [Unknown]
  - Intentional device misuse [Unknown]

NARRATIVE: CASE EVENT DATE: 202006
